FAERS Safety Report 20324365 (Version 1)
Quarter: 2022Q1

REPORT INFORMATION
  Report Type: Spontaneous
  Country: US (occurrence: US)
  Receive Date: 20220111
  Receipt Date: 20220111
  Transmission Date: 20220424
  Serious: No
  Sender: FDA-Public Use
  Company Number: US-MYOVANT SCIENCES GMBH-2021MYSCI1000203

PATIENT
  Sex: Male

DRUGS (1)
  1. ORGOVYX [Suspect]
     Active Substance: RELUGOLIX
     Indication: Prostate cancer
     Dosage: 120 MILLIGRAM, QD
     Route: 048
     Dates: start: 20210809, end: 20211010

REACTIONS (4)
  - Dizziness exertional [Recovering/Resolving]
  - Arthropathy [Recovering/Resolving]
  - Asthenia [Recovering/Resolving]
  - Hot flush [Recovering/Resolving]
